FAERS Safety Report 8517849-6 (Version None)
Quarter: 2012Q3

REPORT INFORMATION
  Report Type: 
  Country: None (occurrence: None)
  Receive Date: 20120712
  Receipt Date: 20120712
  Transmission Date: 20120928
  Serious: Yes (Other)
  Sender: FDA-Public Use
  Company Number: None

PATIENT
  Age: 45 Year
  Sex: Male
  Weight: 99.7913 kg

DRUGS (2)
  1. CYMBALTA [Suspect]
     Indication: DEPRESSION
     Dosage: 30 MG - ONCE DAILY X 7 D THEN DAILY X 7 DAYS PO ; 60 MG ONCE DAILY PO
     Route: 048
     Dates: start: 20120614, end: 20120621
  2. CYMBALTA [Suspect]
     Indication: DEPRESSION
     Dosage: 30 MG - ONCE DAILY X 7 D THEN DAILY X 7 DAYS PO ; 60 MG ONCE DAILY PO
     Route: 048
     Dates: start: 20120622, end: 20120711

REACTIONS (12)
  - EJACULATION FAILURE [None]
  - DYSURIA [None]
  - ORGASM ABNORMAL [None]
  - SEMEN DISCOLOURATION [None]
  - HYPERHIDROSIS [None]
  - LETHARGY [None]
  - HYPERTENSION [None]
  - ANORGASMIA [None]
  - SEMEN LIQUEFACTION ABNORMAL [None]
  - DECREASED APPETITE [None]
  - ERECTILE DYSFUNCTION [None]
  - NAUSEA [None]
